FAERS Safety Report 5724822-X (Version None)
Quarter: 2008Q2

REPORT INFORMATION
  Report Type: 
  Country: None (occurrence: None)
  Receive Date: 20080421
  Receipt Date: 20080407
  Transmission Date: 20081010
  Serious: No
  Sender: FDA-Public Use
  Company Number: WSDF_00717

PATIENT
  Age: 19 Year
  Sex: Female
  Weight: 68 kg

DRUGS (1)
  1. WINRHO SDF [Suspect]
     Indication: ABORTION THREATENED
     Dosage: 120 ?G/KG ONCE IV
     Route: 042
     Dates: start: 20071116, end: 20071116

REACTIONS (4)
  - BACTERIAL INFECTION [None]
  - DRUG EXPOSURE DURING PREGNANCY [None]
  - DRUG HYPERSENSITIVITY [None]
  - TRANSFUSION REACTION [None]
